FAERS Safety Report 25057874 (Version 1)
Quarter: 2025Q1

REPORT INFORMATION
  Report Type: Report from Study
  Country: US (occurrence: US)
  Receive Date: 20250310
  Receipt Date: 20250310
  Transmission Date: 20250408
  Serious: Yes (Other)
  Sender: BIOVITRUM
  Company Number: US-BIOVITRUM-2025-US-003043

PATIENT
  Age: 44 Year
  Sex: Female

DRUGS (1)
  1. KINERET [Suspect]
     Active Substance: ANAKINRA
     Indication: Autoinflammatory disease
     Route: 058
     Dates: start: 20240307

REACTIONS (5)
  - Anaphylactic reaction [Unknown]
  - Product dose omission issue [Unknown]
  - Adverse drug reaction [Unknown]
  - Disease complication [Unknown]
  - Immune system disorder [Unknown]
